FAERS Safety Report 19961373 (Version 1)
Quarter: 2021Q4

REPORT INFORMATION
  Report Type: Spontaneous
  Country: US (occurrence: US)
  Receive Date: 20211017
  Receipt Date: 20211017
  Transmission Date: 20220303
  Serious: No
  Sender: FDA-Public Use
  Company Number: US-SANOFI-00806757

PATIENT
  Sex: Male

DRUGS (1)
  1. SELSUN BLUE MEDICATED [Suspect]
     Active Substance: SELENIUM SULFIDE
     Indication: Sensitive skin
     Dosage: UNK
     Route: 061

REACTIONS (3)
  - Application site rash [Unknown]
  - Condition aggravated [Unknown]
  - Application site irritation [Unknown]
